FAERS Safety Report 6011614-X (Version None)
Quarter: 2008Q4

REPORT INFORMATION
  Report Type: 
  Country: None (occurrence: None)
  Receive Date: 20081218
  Receipt Date: 19980506
  Transmission Date: 20090506
  Serious: Yes (Death, Hospitalization)
  Sender: FDA-Public Use
  Company Number: JP-ROCHE-92367

PATIENT
  Age: 62 Year
  Sex: Male

DRUGS (2)
  1. CANFERON-A [Suspect]
     Dosage: TDD= 6 MILLION IU
     Route: 030
     Dates: start: 19971101, end: 19971114
  2. CANFERON-A [Suspect]
     Dosage: DOSE= 6 MILLION IU
     Route: 030
     Dates: start: 19971115, end: 19971129

REACTIONS (11)
  - ALOPECIA [None]
  - ANAEMIA [None]
  - ANOREXIA [None]
  - BLISTER [None]
  - BLOOD UREA INCREASED [None]
  - DEATH [None]
  - FACIAL PALSY [None]
  - MOUTH ULCERATION [None]
  - OTITIS EXTERNA [None]
  - PYREXIA [None]
  - THROMBOCYTOPENIA [None]
